FAERS Safety Report 8283595 (Version 2)
Quarter: 2012Q4

REPORT INFORMATION
  Report Type: Spontaneous
  Country: US (occurrence: None)
  Receive Date: 20111122
  Receipt Date: 20120426
  Transmission Date: 20130627
  Serious: No
  Sender: FDA-Public Use
  Company Number: PHHY2011US68101

PATIENT
  Age: 33 Year
  Sex: Female

DRUGS (7)
  1. GILENYA [Suspect]
     Indication: MULTIPLE SCLEROSIS
     Route: 048
     Dates: start: 20110527
  2. HYDROCODONE W/APAP (HYDROCODONE, PARACETAMOL) [Concomitant]
  3. ALPRAZOLAM [Concomitant]
  4. CYCLOBENZAPRINE [Concomitant]
  5. ZOLPIDEM [Concomitant]
  6. CITALOPRAM HYDROBROMIDE [Concomitant]
  7. BACLOFEN [Concomitant]

REACTIONS (5)
  - Visual impairment [None]
  - Asthenia [None]
  - Memory impairment [None]
  - Weight increased [None]
  - Ovarian disorder [None]
